FAERS Safety Report 20201670 (Version 1)
Quarter: 2021Q4

REPORT INFORMATION
  Report Type: Spontaneous
  Country: PL (occurrence: PL)
  Receive Date: 20211217
  Receipt Date: 20211217
  Transmission Date: 20220303
  Serious: Yes (Hospitalization, Other)
  Sender: FDA-Public Use
  Company Number: PL-BLUEFISH PHARMACEUTICALS AB-2021BF001244

PATIENT
  Age: 59 Year
  Sex: Female

DRUGS (14)
  1. QUETIAPINE [Suspect]
     Active Substance: QUETIAPINE
     Indication: Mental disorder
     Dosage: UNK
     Route: 065
  2. QUETIAPINE [Suspect]
     Active Substance: QUETIAPINE
     Indication: Agitation
  3. QUETIAPINE [Suspect]
     Active Substance: QUETIAPINE
     Indication: Delusion
  4. QUETIAPINE [Suspect]
     Active Substance: QUETIAPINE
     Indication: Aggression
  5. QUETIAPINE [Suspect]
     Active Substance: QUETIAPINE
     Indication: Refusal of treatment by patient
  6. OLANZAPINE [Suspect]
     Active Substance: OLANZAPINE
     Indication: Mental disorder
     Dosage: UNK
     Route: 065
  7. OLANZAPINE [Suspect]
     Active Substance: OLANZAPINE
     Indication: Agitation
  8. OLANZAPINE [Suspect]
     Active Substance: OLANZAPINE
     Indication: Aggression
  9. OLANZAPINE [Suspect]
     Active Substance: OLANZAPINE
     Indication: Refusal of treatment by patient
  10. OLANZAPINE [Suspect]
     Active Substance: OLANZAPINE
     Indication: Delusion
  11. CLOPIDOGREL [Suspect]
     Active Substance: CLOPIDOGREL BISULFATE
     Indication: Antiplatelet therapy
     Dosage: UNK
  12. VITAMIN B12 [Suspect]
     Active Substance: CYANOCOBALAMIN
     Indication: Product used for unknown indication
     Dosage: UNK
     Route: 030
  13. ASPIRIN [Suspect]
     Active Substance: ASPIRIN
     Indication: Antiplatelet therapy
     Dosage: UNK
  14. DEXAMETHASONE [Suspect]
     Active Substance: DEXAMETHASONE
     Indication: Steroid therapy
     Dosage: 4 MILLIGRAM, QD (4 MG, PER DAY)

REACTIONS (8)
  - Neutropenia [Recovered/Resolved]
  - Anaemia [Recovering/Resolving]
  - Thrombocytopenia [Recovered/Resolved]
  - Hyperglycaemia [Unknown]
  - Pancytopenia [Recovering/Resolving]
  - Blood pressure increased [Unknown]
  - Mental disorder [Recovering/Resolving]
  - Anaemia macrocytic [Unknown]
